FAERS Safety Report 12386326 (Version 1)
Quarter: 2016Q2

REPORT INFORMATION
  Report Type: Spontaneous
  Country: RU (occurrence: RU)
  Receive Date: 20160519
  Receipt Date: 20160519
  Transmission Date: 20160815
  Serious: Yes (Other)
  Sender: FDA-Public Use
  Company Number: RU-VIIV HEALTHCARE LIMITED-RU2016GSK070438

PATIENT
  Sex: Male

DRUGS (3)
  1. TENOFOVIR [Suspect]
     Active Substance: TENOFOVIR
     Indication: HIV INFECTION
     Dosage: UNK
     Dates: start: 2015
  2. LAMIVUDINE. [Suspect]
     Active Substance: LAMIVUDINE
     Indication: HIV INFECTION
     Dosage: UNK
     Dates: start: 2015
  3. REGAST [Suspect]
     Active Substance: EFAVIRENZ
     Indication: HIV INFECTION
     Dosage: UNK
     Dates: start: 2015

REACTIONS (6)
  - Lymphadenopathy [Not Recovered/Not Resolved]
  - CD4 lymphocytes abnormal [Not Recovered/Not Resolved]
  - Respiratory tract infection [Unknown]
  - Aphthous ulcer [Recovered/Resolved]
  - Diarrhoea [Unknown]
  - Malaise [Unknown]
